FAERS Safety Report 5136948-2 (Version None)
Quarter: 2006Q4

REPORT INFORMATION
  Report Type: 
  Country: None (occurrence: None)
  Receive Date: 20061023
  Receipt Date: 20061012
  Transmission Date: 20070319
  Serious: Yes (Other)
  Sender: FDA-Public Use
  Company Number: B0442581A

PATIENT
  Sex: 0

DRUGS (1)
  1. THIOGUANINE [Suspect]
     Indication: INFLAMMATORY BOWEL DISEASE
     Dosage: 20 MG AT NIGHT ORAL
     Route: 048

REACTIONS (1)
  - PANCREATITIS [None]
